FAERS Safety Report 6727021-8 (Version None)
Quarter: 2010Q2

REPORT INFORMATION
  Report Type: 
  Country: None (occurrence: None)
  Receive Date: 20100517
  Receipt Date: 20100505
  Transmission Date: 20101027
  Serious: Yes (Hospitalization, Other)
  Sender: FDA-Public Use
  Company Number: US-BAYER-201019478NA

PATIENT
  Sex: Female

DRUGS (1)
  1. MIRENA [Suspect]
     Indication: CONTRACEPTION
     Dosage: FREQUENCY:CONTINUOUS
     Route: 015
     Dates: start: 20080903

REACTIONS (4)
  - DEVICE EXPULSION [None]
  - ECTOPIC PREGNANCY [None]
  - PERITONEAL HAEMORRHAGE [None]
  - VAGINAL HAEMORRHAGE [None]
